FAERS Safety Report 23442581 (Version 1)
Quarter: 2024Q1

REPORT INFORMATION
  Report Type: Spontaneous
  Country: EG (occurrence: EG)
  Receive Date: 20240125
  Receipt Date: 20240125
  Transmission Date: 20240410
  Serious: Yes (Death, Hospitalization, Other)
  Sender: FDA-Public Use
  Company Number: EG-SA-SAC20240124001143

PATIENT
  Age: 79 Year
  Sex: Female
  Weight: 70 kg

DRUGS (2)
  1. ENOXAPARIN SODIUM [Suspect]
     Active Substance: ENOXAPARIN SODIUM
     Indication: Thrombosis prophylaxis
     Dosage: 40MG, QD
     Route: 058
     Dates: start: 20231021, end: 20231030
  2. ARIXTRA [Concomitant]
     Active Substance: FONDAPARINUX SODIUM
     Dosage: 2.5 UNK, QD
     Route: 058

REACTIONS (7)
  - Coma [Fatal]
  - Hyponatraemia [Fatal]
  - Shock [Fatal]
  - Postoperative wound infection [Fatal]
  - Thrombocytopenia [Fatal]
  - Wound haemorrhage [Fatal]
  - Thrombocytopenia [Fatal]

NARRATIVE: CASE EVENT DATE: 20231027
